FAERS Safety Report 19039726 (Version 1)
Quarter: 2021Q1

REPORT INFORMATION
  Report Type: Spontaneous
  Country: AU (occurrence: AU)
  Receive Date: 20210322
  Receipt Date: 20210322
  Transmission Date: 20210420
  Serious: Yes (Other)
  Sender: FDA-Public Use
  Company Number: AU-VIFOR (INTERNATIONAL) INC.-VIT-2019-08006

PATIENT
  Age: 60 Year
  Sex: Male

DRUGS (4)
  1. VELPHORO [Suspect]
     Active Substance: SUCROFERRIC OXYHYDROXIDE
     Indication: HYPERPHOSPHATAEMIA
     Route: 048
     Dates: start: 201808
  2. MIRCERA [Concomitant]
     Active Substance: METHOXY POLYETHYLENE GLYCOL-EPOETIN BETA
  3. MIRCERA [Concomitant]
     Active Substance: METHOXY POLYETHYLENE GLYCOL-EPOETIN BETA
  4. VELPHORO [Suspect]
     Active Substance: SUCROFERRIC OXYHYDROXIDE
     Route: 048
     Dates: start: 201809, end: 201908

REACTIONS (3)
  - Iron overload [Unknown]
  - Transferrin saturation increased [Recovered/Resolved]
  - Hyperferritinaemia [Recovered/Resolved]

NARRATIVE: CASE EVENT DATE: 201908
